FAERS Safety Report 13947102 (Version 1)
Quarter: 2017Q3

REPORT INFORMATION
  Report Type: Spontaneous
  Country: US (occurrence: US)
  Receive Date: 20170907
  Receipt Date: 20170907
  Transmission Date: 20171128
  Serious: Yes (Hospitalization)
  Sender: FDA-Public Use
  Company Number: US-ASTELLAS-2017US034855

PATIENT
  Age: 72 Year
  Sex: Female

DRUGS (1)
  1. LEXISCAN [Suspect]
     Active Substance: REGADENOSON
     Indication: SCAN MYOCARDIAL PERFUSION
     Dosage: UNK UNK, UNKNOWN FREQ.
     Route: 042
     Dates: start: 20160223

REACTIONS (5)
  - Tremor [Recovered/Resolved]
  - Transient ischaemic attack [Unknown]
  - Mental status changes [Unknown]
  - Hemiparesis [Unknown]
  - Aphasia [Unknown]
